FAERS Safety Report 6045112-4 (Version None)
Quarter: 2009Q1

REPORT INFORMATION
  Report Type: 
  Country: None (occurrence: None)
  Receive Date: 20090116
  Receipt Date: 20090116
  Transmission Date: 20090719
  Serious: Yes (Other)
  Sender: FDA-Public Use
  Company Number: None

PATIENT
  Age: 38 Year
  Sex: Female
  Weight: 76.2043 kg

DRUGS (2)
  1. LEVAQUIN [Suspect]
     Indication: SINUSITIS
     Dosage: 750 MG 1/DAY 14 DAYS PO
     Route: 048
     Dates: start: 20081230, end: 20090110
  2. IBUPROFIN [Concomitant]

REACTIONS (3)
  - ARTHRALGIA [None]
  - HALLUCINATION [None]
  - PHOTOPSIA [None]
